FAERS Safety Report 5004853-8 (Version None)
Quarter: 2006Q2

REPORT INFORMATION
  Report Type: 
  Country: None (occurrence: None)
  Receive Date: 20060517
  Receipt Date: 20050829
  Transmission Date: 20061013
  Serious: Yes (Hospitalization)
  Sender: FDA-Public Use
  Company Number: US-MERCK-0508USA04743

PATIENT
  Age: 82 Year
  Sex: Female

DRUGS (1)
  1. VIOXX [Suspect]
     Route: 048
     Dates: start: 20030501, end: 20040917

REACTIONS (3)
  - DIVERTICULUM [None]
  - KNEE ARTHROPLASTY [None]
  - MYOCARDIAL ISCHAEMIA [None]
